FAERS Safety Report 21962434 (Version 1)
Quarter: 2023Q1

REPORT INFORMATION
  Report Type: Spontaneous
  Country: GB (occurrence: GB)
  Receive Date: 20230207
  Receipt Date: 20230207
  Transmission Date: 20230418
  Serious: Yes (Other)
  Sender: FDA-Public Use
  Company Number: US-ZAMBON SWITZERLAND LTD.-2023GB000007

PATIENT

DRUGS (3)
  1. FOSFOMYCIN TROMETHAMINE [Suspect]
     Active Substance: FOSFOMYCIN TROMETHAMINE
     Indication: Escherichia infection
     Dosage: 1 SACHET ONLY
     Route: 065
  2. FLUCONAZOLE [Concomitant]
     Active Substance: FLUCONAZOLE
     Indication: Escherichia infection
     Dosage: UNK
     Route: 065
     Dates: start: 202209, end: 202209
  3. GENTAMICIN [Concomitant]
     Active Substance: GENTAMICIN
     Indication: Escherichia infection
     Dosage: UNK
     Route: 065
     Dates: start: 20220901, end: 20220901

REACTIONS (9)
  - Fatigue [Unknown]
  - Gastritis [Unknown]
  - Arthralgia [Unknown]
  - Chest discomfort [Unknown]
  - Abdominal pain upper [Not Recovered/Not Resolved]
  - Pain [Unknown]
  - Diarrhoea [Unknown]
  - Dizziness [Unknown]
  - Nausea [Unknown]

NARRATIVE: CASE EVENT DATE: 20221001
